FAERS Safety Report 5669124-5 (Version None)
Quarter: 2008Q1

REPORT INFORMATION
  Report Type: 
  Country: None (occurrence: None)
  Receive Date: 20080317
  Receipt Date: 20080313
  Transmission Date: 20080703
  Serious: Yes (Other)
  Sender: FDA-Public Use
  Company Number: AR-ABBOTT-08P-007-0442384-00

PATIENT
  Sex: Female

DRUGS (2)
  1. KALETRA [Suspect]
     Indication: ANTIRETROVIRAL THERAPY
     Route: 048
     Dates: start: 20060609, end: 20061219
  2. TRUVADA [Suspect]
     Indication: ANTIRETROVIRAL THERAPY
     Route: 048
     Dates: start: 20060609, end: 20061219

REACTIONS (1)
  - ABORTION SPONTANEOUS [None]
